FAERS Safety Report 7254953-7 (Version None)
Quarter: 2011Q1

REPORT INFORMATION
  Report Type: 
  Country: None (occurrence: None)
  Receive Date: 20110129
  Receipt Date: 20100204
  Transmission Date: 20110831
  Serious: No
  Sender: FDA-Public Use
  Company Number: US-ABBOTT-10P-163-0624705-00

PATIENT
  Sex: Female
  Weight: 90.8 kg

DRUGS (5)
  1. HUMIRA [Suspect]
     Indication: RHEUMATOID ARTHRITIS
  2. CELECOXIB [Concomitant]
     Indication: RHEUMATOID ARTHRITIS
  3. CARDIZEM LA [Concomitant]
     Indication: PERICARDIAL EFFUSION
  4. SULFASALAZINE [Concomitant]
     Indication: RHEUMATOID ARTHRITIS
  5. LASIX [Concomitant]
     Indication: PERICARDIAL EFFUSION

REACTIONS (3)
  - PNEUMONIA [None]
  - SKIN FISSURES [None]
  - PERICARDIAL EFFUSION [None]
